FAERS Safety Report 19353298 (Version 1)
Quarter: 2021Q2

REPORT INFORMATION
  Report Type: Spontaneous
  Country: US (occurrence: US)
  Receive Date: 20210531
  Receipt Date: 20210531
  Transmission Date: 20210717
  Serious: Yes (Disabling, Other)
  Sender: FDA-Public Use
  Company Number: US-PURDUE-USA-2006-0024840

PATIENT
  Age: 19 Year
  Sex: Female
  Weight: 46.26 kg

DRUGS (5)
  1. MS CONTIN [Suspect]
     Active Substance: MORPHINE SULFATE
     Indication: PAIN
     Dosage: UNK
     Route: 048
  2. OXYCODONE [Suspect]
     Active Substance: OXYCODONE
     Indication: DRUG ABUSER
     Dosage: UNK UNK, UNK
     Route: 055
  3. OXYCONTIN [Suspect]
     Active Substance: OXYCODONE HYDROCHLORIDE
     Indication: DRUG ABUSER
     Dosage: UNK UNK, UNK
     Route: 055
     Dates: start: 200510, end: 20060809
  4. DILAUDID [Suspect]
     Active Substance: HYDROMORPHONE HYDROCHLORIDE
     Indication: PAIN
     Dosage: UNK
     Route: 048
  5. ROXICODONE [Suspect]
     Active Substance: OXYCODONE HYDROCHLORIDE
     Indication: DRUG ABUSER
     Dosage: UNK
     Route: 065

REACTIONS (14)
  - Drug dependence [Unknown]
  - Mental impairment [Recovered/Resolved]
  - Vomiting [Unknown]
  - Intentional product misuse [Unknown]
  - Weight decreased [Unknown]
  - Drug abuse [Unknown]
  - Irritability [Recovered/Resolved]
  - Withdrawal syndrome [Recovered/Resolved]
  - Pruritus [Unknown]
  - Insomnia [Unknown]
  - Formication [Recovered/Resolved]
  - Oligomenorrhoea [Unknown]
  - Somnolence [Unknown]
  - Decreased appetite [Recovered/Resolved]

NARRATIVE: CASE EVENT DATE: 200510
